FAERS Safety Report 24902491 (Version 1)
Quarter: 2025Q1

REPORT INFORMATION
  Report Type: Spontaneous
  Country: US (occurrence: US)
  Receive Date: 20250130
  Receipt Date: 20250130
  Transmission Date: 20250408
  Serious: No
  Sender: UROGEN PHARMA
  Company Number: US-UROGEN PHARMA LTD.-2024-UGN-000187

PATIENT

DRUGS (3)
  1. JELMYTO [Suspect]
     Active Substance: MITOMYCIN
     Indication: Transitional cell cancer of the renal pelvis and ureter
     Dosage: 7 CUBIC CENTIMETRE (INSTILLATION)
     Route: 065
     Dates: start: 20241120, end: 20241120
  2. JELMYTO [Suspect]
     Active Substance: MITOMYCIN
     Dosage: 7 CUBIC CENTIMETRE (INSTILLATION)
     Route: 065
     Dates: start: 20241125, end: 20241125
  3. JELMYTO [Suspect]
     Active Substance: MITOMYCIN
     Dosage: 7 CUBIC CENTIMETRE (INSTILLATION)
     Route: 065
     Dates: start: 20241204, end: 20241204

REACTIONS (1)
  - Pain [Unknown]
